FAERS Safety Report 20947695 (Version 1)
Quarter: 2022Q2

REPORT INFORMATION
  Report Type: Spontaneous
  Country: NL (occurrence: NL)
  Receive Date: 20220611
  Receipt Date: 20220611
  Transmission Date: 20220721
  Serious: Yes (Life-Threatening, Hospitalization, Other)
  Sender: FDA-Public Use
  Company Number: None

PATIENT
  Sex: Female
  Weight: 76 kg

DRUGS (7)
  1. CAPECITABINE [Suspect]
     Active Substance: CAPECITABINE
     Indication: Rectal cancer
     Dosage: 4000 MILLIGRAM DAILY; 2DD 2000MG , TABLET FO 150MG / BRAND NAME NOT SPECIFIED , FREQUENCY : 12 HRS,
     Dates: start: 20220422, end: 20220506
  2. OXALIPLATIN [Suspect]
     Active Substance: OXALIPLATIN
     Indication: Rectal cancer
     Dosage: 258 MILLIGRAM DAILY; 1DD 258MG IN GLUCOSE 5% ,INFOPL CONC 5MG/ML / BRAND NAME NOT SPECIFIED, DURATIO
     Dates: start: 20220422, end: 20220506
  3. DEXAMETHASONE [Concomitant]
     Active Substance: DEXAMETHASONE
     Dosage: INJECTION FLUID, 4 MG/ML (MILLIGRAM PER MILLILITER) ,INJVLST  4MG/ML (BASE) / BRAND NAME NOT SPECIFI
  4. PANTOPRAZOLE SODIUM [Concomitant]
     Active Substance: PANTOPRAZOLE SODIUM
     Dosage: 40 MG (MILLIGRAM) ,TABLET MSR 40MG / BRAND NAME NOT SPECIFIED ,THERAPY START DATE AND END DATE : AS
  5. NADROPARIN [Concomitant]
     Active Substance: NADROPARIN
     Dosage: INJECTION FLUID, 9500 IU/ML (UNITS PER MILLILITRE) ,INJVLST  9500IE/ML / BRAND NAME NOT SPECIFIED ,T
  6. ETORICOXIB [Concomitant]
     Active Substance: ETORICOXIB
     Dosage: 60 MG (MILLIGRAMS), TABLET FO  60MG / BRAND NAME NOT SPECIFIED ,THERAPY START DATE AND END DATE : A
  7. PREGABALIN [Concomitant]
     Active Substance: PREGABALIN
     Dosage: CAPSULE, 75 MG (MILLIGRAM) ,/ BRAND NAME NOT SPECIFIED ,THERAPY START DATE AND END DATE : ASKU , FOR

REACTIONS (4)
  - Hypokalaemia [Recovering/Resolving]
  - Acute kidney injury [Recovering/Resolving]
  - Ileus [Recovering/Resolving]
  - Mucosal inflammation [Recovering/Resolving]
